FAERS Safety Report 9829400 (Version 2)
Quarter: 2014Q1

REPORT INFORMATION
  Report Type: Spontaneous
  Country: US (occurrence: US)
  Receive Date: 20140120
  Receipt Date: 20140124
  Transmission Date: 20141002
  Serious: Yes (Hospitalization)
  Sender: FDA-Public Use
  Company Number: US-BIOGENIDEC-2014BI002507

PATIENT
  Sex: Female

DRUGS (23)
  1. AVONEX [Suspect]
     Indication: MULTIPLE SCLEROSIS
     Route: 030
     Dates: start: 2002
  2. AVONEX [Suspect]
     Indication: MULTIPLE SCLEROSIS
     Route: 030
     Dates: start: 20090420
  3. ABILIFY [Concomitant]
  4. ADVAIR DISKUS [Concomitant]
  5. ALPRAZOLAM [Concomitant]
  6. AMANTADINE HCL [Concomitant]
  7. BACLOFEN [Concomitant]
  8. CELEBREX [Concomitant]
  9. DIOVAN [Concomitant]
  10. EXFORGE [Concomitant]
  11. FLUOXETINE HCL [Concomitant]
  12. FLUTICASONE PROPIONATE [Concomitant]
  13. GABAPENTIN [Concomitant]
  14. HYDROCODONE-ACETAMINOPHEN [Concomitant]
  15. LEVAQUIN [Concomitant]
  16. LIPITOR [Concomitant]
  17. LUNESTA [Concomitant]
  18. LYRICA [Concomitant]
  19. NORCO [Concomitant]
  20. OMEPRAZOLE [Concomitant]
  21. PROZAC [Concomitant]
  22. TYLENOL PM EXTRA STRENGTH [Concomitant]
  23. XANAX [Concomitant]

REACTIONS (1)
  - Intervertebral disc protrusion [Unknown]
